FAERS Safety Report 5071793-8 (Version None)
Quarter: 2006Q3

REPORT INFORMATION
  Report Type: 
  Country: None (occurrence: None)
  Receive Date: 20060804
  Receipt Date: 20060703
  Transmission Date: 20061208
  Serious: Yes (Hospitalization)
  Sender: FDA-Public Use
  Company Number: PHBS2006NL11340

PATIENT
  Sex: Male

DRUGS (1)
  1. VOLTAROL RETARD [Suspect]
     Indication: PAIN

REACTIONS (2)
  - FEMUR FRACTURE [None]
  - SURGERY [None]
